FAERS Safety Report 15514676 (Version 1)
Quarter: 2018Q4

REPORT INFORMATION
  Report Type: Spontaneous
  Country: US (occurrence: US)
  Receive Date: 20181016
  Receipt Date: 20181016
  Transmission Date: 20190205
  Serious: No
  Sender: FDA-Public Use
  Company Number: US-009507513-1809USA012983

PATIENT
  Sex: Female

DRUGS (2)
  1. NEXPLANON [Suspect]
     Active Substance: ETONOGESTREL
     Dosage: NEW NEXPLANON
     Route: 059
     Dates: start: 2017
  2. NEXPLANON [Suspect]
     Active Substance: ETONOGESTREL
     Dosage: THE NEXPLANON ROD
     Route: 059
     Dates: end: 2017

REACTIONS (2)
  - Complication associated with device [Recovered/Resolved]
  - Device breakage [Recovered/Resolved]
